FAERS Safety Report 6393875-0 (Version None)
Quarter: 2009Q4

REPORT INFORMATION
  Report Type: 
  Country: None (occurrence: None)
  Receive Date: 20091008
  Receipt Date: 20090925
  Transmission Date: 20100525
  Serious: Yes (Disabling)
  Sender: FDA-Public Use
  Company Number: FR-PFIZER INC-2009274099

PATIENT

DRUGS (6)
  1. AROMASINE [Suspect]
     Indication: ADJUVANT THERAPY
     Dosage: UNK
     Dates: start: 20090401
  2. CALCIUM [Concomitant]
  3. COLECALCIFEROL [Concomitant]
  4. SECTRAL [Concomitant]
  5. DIFFU K [Concomitant]
  6. MODURETIC 5-50 [Concomitant]

REACTIONS (1)
  - KERATOCONJUNCTIVITIS SICCA [None]
